FAERS Safety Report 15310898 (Version 2)
Quarter: 2018Q4

REPORT INFORMATION
  Report Type: Spontaneous
  Country: US (occurrence: US)
  Receive Date: 20180823
  Receipt Date: 20181009
  Transmission Date: 20190204
  Serious: Yes (Other)
  Sender: FDA-Public Use
  Company Number: US-TEVA-2018-US-944997

PATIENT
  Sex: Female

DRUGS (3)
  1. VALSARTAN. [Suspect]
     Active Substance: VALSARTAN
     Route: 065
     Dates: start: 2016, end: 201807
  2. VALSARTAN. [Suspect]
     Active Substance: VALSARTAN
     Route: 065
     Dates: start: 2016, end: 201807
  3. LOSARTAN. [Concomitant]
     Active Substance: LOSARTAN

REACTIONS (2)
  - Dizziness [Recovered/Resolved]
  - Loss of consciousness [Recovered/Resolved]
